FAERS Safety Report 9100823 (Version 1)
Quarter: 2013Q1

REPORT INFORMATION
  Report Type: Spontaneous
  Country: US (occurrence: US)
  Receive Date: 20130215
  Receipt Date: 20130215
  Transmission Date: 20140127
  Serious: Yes (Other)
  Sender: FDA-Public Use
  Company Number: US-PFIZER INC-2013057972

PATIENT
  Age: 53 Year
  Sex: Female
  Weight: 68.03 kg

DRUGS (2)
  1. PREMPRO [Suspect]
     Indication: MENOPAUSAL SYMPTOMS
     Dosage: 0.3/1.5 MG, 1X/DAY
     Dates: start: 201208, end: 201212
  2. PREMPRO [Suspect]
     Indication: NIGHT SWEATS

REACTIONS (3)
  - Cerebrovascular accident [Recovered/Resolved]
  - Blood pressure increased [Recovered/Resolved]
  - Dizziness [Recovered/Resolved]
